FAERS Safety Report 5013474-2 (Version None)
Quarter: 2006Q2

REPORT INFORMATION
  Report Type: 
  Country: None (occurrence: None)
  Receive Date: 20060525
  Receipt Date: 20060516
  Transmission Date: 20061013
  Serious: Yes (Hospitalization)
  Sender: FDA-Public Use
  Company Number: 2006065372

PATIENT
  Age: 56 Year
  Sex: Male
  Weight: 91.6266 kg

DRUGS (1)
  1. BEXTRA [Suspect]
     Indication: JOINT STIFFNESS
     Dosage: 10 MG (10 MG, 1 IN 1D), ORAL
     Route: 048
     Dates: start: 20010501, end: 20040901

REACTIONS (2)
  - CORONARY ARTERY OCCLUSION [None]
  - DEPRESSION [None]
